FAERS Safety Report 9172251 (Version 1)
Quarter: 2013Q1

REPORT INFORMATION
  Report Type: Spontaneous
  Country: US (occurrence: US)
  Receive Date: 20130319
  Receipt Date: 20130319
  Transmission Date: 20140127
  Serious: No
  Sender: FDA-Public Use
  Company Number: US-ASTRAZENECA-2013SE15121

PATIENT
  Age: 56 Year
  Sex: Female

DRUGS (2)
  1. SYMBICORT  PMDI [Suspect]
     Route: 055
  2. ADVAIR [Suspect]

REACTIONS (2)
  - Drug ineffective [Unknown]
  - Breast mass [Unknown]
